FAERS Safety Report 21304422 (Version 1)
Quarter: 2022Q3

REPORT INFORMATION
  Report Type: Spontaneous
  Country: US (occurrence: None)
  Receive Date: 20220907
  Receipt Date: 20220907
  Transmission Date: 20221026
  Serious: No
  Sender: FDA-Public Use
  Company Number: US-ARIS GLOBAL-202108-1383

PATIENT
  Age: 71 Year
  Sex: Female

DRUGS (16)
  1. OXERVATE [Suspect]
     Active Substance: CENEGERMIN-BKBJ
     Indication: Neurotrophic keratopathy
     Route: 047
     Dates: start: 20210728
  2. OXERVATE [Suspect]
     Active Substance: CENEGERMIN-BKBJ
     Indication: Hypoaesthesia eye
  3. OXERVATE [Suspect]
     Active Substance: CENEGERMIN-BKBJ
     Indication: Ulcerative keratitis
  4. DUREZOL [Concomitant]
     Active Substance: DIFLUPREDNATE
  5. NIFEDIPINE [Concomitant]
     Active Substance: NIFEDIPINE
  6. EZETIMIBE [Concomitant]
     Active Substance: EZETIMIBE
  7. ROSUVASTATIN CALCIUM [Concomitant]
     Active Substance: ROSUVASTATIN CALCIUM
  8. VASCEPA [Concomitant]
     Active Substance: ICOSAPENT ETHYL
  9. LISINOPRIL AND HYDROCHLOROTHIAZIDE [Concomitant]
     Active Substance: HYDROCHLOROTHIAZIDE\LISINOPRIL
  10. JANUVIA [Concomitant]
     Active Substance: SITAGLIPTIN PHOSPHATE
  11. FENOFIBRATE [Concomitant]
     Active Substance: FENOFIBRATE
  12. VITAMIN D3 [Concomitant]
     Active Substance: CHOLECALCIFEROL
  13. VITAMIN E [Concomitant]
     Active Substance: .ALPHA.-TOCOPHEROL
  14. CENTRUM SILVER WOMEN [Concomitant]
  15. METFORMIN HYDROCHLORIDE [Concomitant]
     Active Substance: METFORMIN HYDROCHLORIDE
  16. ATENOLOL [Concomitant]
     Active Substance: ATENOLOL

REACTIONS (5)
  - Eye pain [Unknown]
  - Eye pruritus [Unknown]
  - Eye irritation [Unknown]
  - Lacrimation increased [Unknown]
  - Eye swelling [Unknown]
